FAERS Safety Report 10700351 (Version 1)
Quarter: 2015Q1

REPORT INFORMATION
  Report Type: Spontaneous
  Country: JO (occurrence: None)
  Receive Date: 20150107
  Receipt Date: 20150107
  Transmission Date: 20150721
  Serious: Yes (Life-Threatening)
  Sender: FDA-Public Use
  Company Number: FK201406512

PATIENT
  Age: 65 Year
  Sex: Male

DRUGS (1)
  1. CEFTRIAXON (MANUFACTURER UNKNOWN) (CEFTRIAXON-DINATRIUM) (CEFTRIAXON-DINATRIUM) [Suspect]
     Active Substance: CEFTRIAXONE
     Indication: URINARY TRACT INFECTION
     Dosage: 1 GM,  1 IN 1 TOTAL, INTRAVENOUS (NOT OTHERWISE SPECIFIED)
     Route: 042

REACTIONS (2)
  - Kounis syndrome [None]
  - Acute myocardial infarction [None]
